FAERS Safety Report 9194396 (Version 1)
Quarter: 2013Q1

REPORT INFORMATION
  Report Type: Spontaneous
  Country: US (occurrence: US)
  Receive Date: 20130327
  Receipt Date: 20130327
  Transmission Date: 20140127
  Serious: No
  Sender: FDA-Public Use
  Company Number: US-ALLERGAN-1202981US

PATIENT
  Age: 78 Year
  Sex: Female

DRUGS (4)
  1. LATISSE 0.03% [Suspect]
     Indication: GROWTH OF EYELASHES
     Dosage: 2 GTT, QHS
     Route: 061
     Dates: start: 201202
  2. PATADAY EYE DROPS [Concomitant]
     Indication: HYPERSENSITIVITY
     Dosage: 2 GTT, BID
     Route: 047
  3. SYSTANE [Concomitant]
     Indication: HYPERSENSITIVITY
     Dosage: 2 GTT, PRN
     Route: 047
  4. MOISTURE DROPS [Concomitant]
     Indication: HYPERSENSITIVITY
     Dosage: 2 GTT, PRN
     Route: 047

REACTIONS (5)
  - Erythema of eyelid [Not Recovered/Not Resolved]
  - Eyelid irritation [Not Recovered/Not Resolved]
  - Eyelids pruritus [Not Recovered/Not Resolved]
  - Eyelid irritation [Not Recovered/Not Resolved]
  - Drug ineffective [Unknown]
